FAERS Safety Report 5483153-6 (Version None)
Quarter: 2007Q4

REPORT INFORMATION
  Report Type: 
  Country: None (occurrence: None)
  Receive Date: 20071011
  Receipt Date: 20071002
  Transmission Date: 20080405
  Serious: Yes (Hospitalization)
  Sender: FDA-Public Use
  Company Number: IE-ABBOTT-07P-229-0418083-00

PATIENT
  Age: 41 Year
  Sex: Female

DRUGS (4)
  1. HUMIRA [Suspect]
     Indication: CROHN'S DISEASE
     Route: 058
     Dates: start: 20070201, end: 20070701
  2. HUMIRA [Suspect]
     Route: 058
     Dates: start: 20070212, end: 20070212
  3. HUMIRA [Suspect]
     Route: 058
     Dates: start: 20070226, end: 20070226
  4. HUMIRA [Suspect]
     Route: 058
     Dates: start: 20070701, end: 20070901

REACTIONS (2)
  - COLECTOMY [None]
  - CROHN'S DISEASE [None]
